FAERS Safety Report 15658925 (Version 1)
Quarter: 2018Q4

REPORT INFORMATION
  Report Type: Report from Study
  Country: None (occurrence: NL)
  Receive Date: 20181126
  Receipt Date: 20181126
  Transmission Date: 20190205
  Serious: Yes (Other)
  Sender: FDA-Public Use
  Company Number: NL-RICON PHARMA, LLC-RIC201811-001083

PATIENT
  Age: 51 Year
  Sex: Female

DRUGS (3)
  1. DICLOFENAC SODIUM. [Suspect]
     Active Substance: DICLOFENAC SODIUM
  2. IBUPROFEN. [Suspect]
     Active Substance: IBUPROFEN
  3. CELECOXIB. [Concomitant]
     Active Substance: CELECOXIB

REACTIONS (3)
  - Circulatory collapse [Unknown]
  - Angioedema [Unknown]
  - Palpitations [Unknown]
